FAERS Safety Report 6478790-6 (Version None)
Quarter: 2009Q4

REPORT INFORMATION
  Report Type: 
  Country: None (occurrence: None)
  Receive Date: 20091207
  Receipt Date: 20091127
  Transmission Date: 20100525
  Serious: Yes (Hospitalization, Other)
  Sender: FDA-Public Use
  Company Number: FI-AMGEN-UK373679

PATIENT
  Age: 77 Year
  Sex: Female
  Weight: 64 kg

DRUGS (18)
  1. NPLATE [Suspect]
     Indication: THROMBOCYTOPENIA
     Route: 058
     Dates: start: 20091002, end: 20091002
  2. TRANEXAMIC ACID [Suspect]
     Route: 042
     Dates: start: 20091002, end: 20091002
  3. EPREX [Suspect]
     Dates: start: 20091001, end: 20091014
  4. ADRENALIN [Concomitant]
     Route: 042
     Dates: start: 20090929
  5. NOVORAPID [Concomitant]
     Route: 042
     Dates: start: 20090930
  6. NORADRENALINE [Concomitant]
     Route: 042
     Dates: start: 20090930
  7. PARACETAMOL [Concomitant]
     Route: 042
     Dates: start: 20090930
  8. FURESIS [Concomitant]
     Route: 042
     Dates: start: 20090930
  9. SOMAC [Concomitant]
     Route: 042
     Dates: start: 20090930
  10. OXYNORM [Concomitant]
     Dates: start: 20091001
  11. SOLU-CORTEF [Concomitant]
     Route: 042
  12. EMGESAN [Concomitant]
     Route: 048
     Dates: start: 20091001
  13. EMCONCOR [Concomitant]
     Route: 048
     Dates: start: 20091001
  14. CALCICHEW [Concomitant]
     Route: 048
     Dates: start: 20091001
  15. DORZOLAMIDE [Concomitant]
     Route: 047
     Dates: start: 20091001
  16. FRAGMIN [Concomitant]
     Route: 058
     Dates: start: 20091001
  17. BIMATOPROST [Concomitant]
     Route: 047
     Dates: start: 20091001
  18. WARFARIN SODIUM [Concomitant]

REACTIONS (4)
  - ATRIAL FIBRILLATION [None]
  - ATRIAL THROMBOSIS [None]
  - PLATELET COUNT INCREASED [None]
  - POSTOPERATIVE THROMBOSIS [None]
